FAERS Safety Report 6801276-3 (Version None)
Quarter: 2010Q2

REPORT INFORMATION
  Report Type: 
  Country: None (occurrence: None)
  Receive Date: 20100629
  Receipt Date: 20100423
  Transmission Date: 20101027
  Serious: No
  Sender: FDA-Public Use
  Company Number: A0857333A

PATIENT
  Age: 52 Year
  Sex: Male

DRUGS (4)
  1. LAMICTAL XR [Suspect]
     Indication: EPILEPSY
     Dosage: 100MGD PER DAY
     Route: 048
  2. TEGRETOL [Concomitant]
  3. DILANTIN [Concomitant]
  4. EYEDROPS [Concomitant]

REACTIONS (1)
  - FEELING DRUNK [None]
